FAERS Safety Report 16365645 (Version 2)
Quarter: 2020Q1

REPORT INFORMATION
  Report Type: Spontaneous
  Country: US (occurrence: US)
  Receive Date: 20190529
  Receipt Date: 20200101
  Transmission Date: 20200409
  Serious: Yes (Hospitalization)
  Sender: FDA-Public Use
  Company Number: US-ROCHE-2323796

PATIENT
  Sex: Male

DRUGS (8)
  1. POTASSIUM [Concomitant]
     Active Substance: POTASSIUM
  2. XARELTO [Concomitant]
     Active Substance: RIVAROXABAN
  3. CARVEDILOL. [Concomitant]
     Active Substance: CARVEDILOL
     Route: 065
  4. ERIVEDGE [Suspect]
     Active Substance: VISMODEGIB
     Indication: BASAL CELL CARCINOMA
     Route: 048
     Dates: start: 20180125
  5. DILTIAZEM. [Concomitant]
     Active Substance: DILTIAZEM
  6. TAMSULOSIN [Concomitant]
     Active Substance: TAMSULOSIN
  7. OMEPRAZOLE. [Concomitant]
     Active Substance: OMEPRAZOLE
  8. GABAPENTIN. [Concomitant]
     Active Substance: GABAPENTIN

REACTIONS (4)
  - Muscle spasms [Unknown]
  - Infection [Unknown]
  - Gait disturbance [Unknown]
  - Pain in extremity [Unknown]
